FAERS Safety Report 12477086 (Version 1)
Quarter: 2016Q2

REPORT INFORMATION
  Report Type: Other
  Country: IT (occurrence: IT)
  Receive Date: 20160617
  Receipt Date: 20160617
  Transmission Date: 20160815
  Serious: Yes (Death, Hospitalization)
  Sender: FDA-Public Use
  Company Number: IT-PIRAMAL ENTERPRISES LTD-2016-PEL-000678

PATIENT

DRUGS (4)
  1. DOPAMINE [Concomitant]
     Active Substance: DOPAMINE\DOPAMINE HYDROCHLORIDE
     Indication: POLYURIA
     Dosage: UNK
     Route: 065
  2. FUROSEMIDE. [Concomitant]
     Active Substance: FUROSEMIDE
     Indication: POLYURIA
     Dosage: UNK
     Route: 065
  3. SEVOFLURANE PIRAMAL [Suspect]
     Active Substance: SEVOFLURANE
     Indication: ANAESTHESIA
     Dosage: UNK
     Route: 065
  4. DANTROLENE SODIUM. [Suspect]
     Active Substance: DANTROLENE SODIUM
     Indication: HYPERTHERMIA MALIGNANT
     Dosage: 2.5 MG/KG, UNK
     Route: 065

REACTIONS (5)
  - Embolism [Fatal]
  - Hyperthermia malignant [Unknown]
  - Body temperature increased [Recovered/Resolved]
  - Urine output decreased [None]
  - Drug ineffective [Unknown]
